FAERS Safety Report 5197340-8 (Version None)
Quarter: 2006Q4

REPORT INFORMATION
  Report Type: 
  Country: None (occurrence: None)
  Receive Date: 20060929
  Receipt Date: 20060814
  Transmission Date: 20070319
  Serious: Yes (Other)
  Sender: FDA-Public Use
  Company Number: 13425855

PATIENT
  Sex: Female
  Weight: 73.47 kg

DRUGS (13)
  1. EMSAM [Suspect]
     Indication: DEPRESSION
     Dosage: 9 MILLIGRAM,1/24 HOUR
     Dates: start: 20060601
  2. INDERAL [Concomitant]
  3. PROTONIX [Concomitant]
  4. MAALOX FAST BLOCKER [Concomitant]
  5. PHENERGAN [Concomitant]
  6. XANAX [Concomitant]
  7. PROVIGIL [Concomitant]
  8. HALCION [Concomitant]
  9. ESTRACE [Concomitant]
  10. TRAMADOL HCL [Concomitant]
  11. AMBIEN [Concomitant]
  12. VICODIN [Concomitant]
  13. FLONASE [Concomitant]

REACTIONS (7)
  - APPLICATION SITE EXFOLIATION [None]
  - APPLICATION SITE PRURITUS [None]
  - DRUG INEFFECTIVE [None]
  - HYPERHIDROSIS [None]
  - MIGRAINE [None]
  - PAIN IN EXTREMITY [None]
  - SUICIDAL IDEATION [None]
